FAERS Safety Report 12621236 (Version 2)
Quarter: 2016Q4

REPORT INFORMATION
  Report Type: Report from Study
  Country: US (occurrence: US)
  Receive Date: 20160804
  Receipt Date: 20161003
  Transmission Date: 20170207
  Serious: No
  Sender: FDA-Public Use
  Company Number: US-009507513-1608USA002077

PATIENT
  Age: 20 Year
  Sex: Female
  Weight: 52.15 kg

DRUGS (1)
  1. IMPLANON [Suspect]
     Active Substance: ETONOGESTREL
     Indication: CONTRACEPTION
     Dosage: 1 DF, UNK
     Route: 059
     Dates: start: 20140717, end: 20160801

REACTIONS (4)
  - Fibrosis [Unknown]
  - Fibromyalgia [Unknown]
  - Medical device removal [Unknown]
  - Mood altered [Unknown]

NARRATIVE: CASE EVENT DATE: 20160801
